FAERS Safety Report 7875016-3 (Version None)
Quarter: 2011Q4

REPORT INFORMATION
  Report Type: 
  Country: None (occurrence: None)
  Receive Date: 20111031
  Receipt Date: 20111019
  Transmission Date: 20120403
  Serious: Yes (Death, Hospitalization)
  Sender: FDA-Public Use
  Company Number: US-ACTELION-A-NJ2011-51828

PATIENT

DRUGS (3)
  1. TRACLEER [Suspect]
     Dosage: 62.5 MG, UNK
     Route: 048
     Dates: start: 20101230, end: 20110101
  2. REVATIO [Concomitant]
  3. TRACLEER [Suspect]
     Indication: PULMONARY ARTERIAL HYPERTENSION
     Dosage: UNK
     Route: 048
     Dates: start: 20110101

REACTIONS (2)
  - DEATH [None]
  - CARDIAC FAILURE CONGESTIVE [None]
